FAERS Safety Report 14212128 (Version 1)
Quarter: 2017Q4

REPORT INFORMATION
  Report Type: Spontaneous
  Country: US (occurrence: None)
  Receive Date: 20171121
  Receipt Date: 20171121
  Transmission Date: 20180321
  Serious: Yes (Hospitalization)
  Sender: FDA-Public Use
  Company Number: None

PATIENT
  Age: 83 Year
  Sex: Male
  Weight: 74.98 kg

DRUGS (1)
  1. WARFARIN [Suspect]
     Active Substance: WARFARIN
     Indication: ATRIAL FIBRILLATION
     Route: 048
     Dates: start: 20160330

REACTIONS (8)
  - Haemorrhage [None]
  - Rectal haemorrhage [None]
  - Haematocrit decreased [None]
  - Haemoglobin decreased [None]
  - Radiation proctitis [None]
  - Haemorrhoids [None]
  - International normalised ratio abnormal [None]
  - Blood urine present [None]

NARRATIVE: CASE EVENT DATE: 20171027
